FAERS Safety Report 9896750 (Version 1)
Quarter: 2014Q1

REPORT INFORMATION
  Report Type: Spontaneous
  Country: US (occurrence: US)
  Receive Date: 20140213
  Receipt Date: 20140213
  Transmission Date: 20141002
  Serious: No
  Sender: FDA-Public Use
  Company Number: US-BRISTOL-MYERS SQUIBB COMPANY-19182377

PATIENT
  Age: 65 Year
  Sex: Female
  Weight: 63.49 kg

DRUGS (7)
  1. ABATACEPT SUBQ INJECTION 125MG/ML [Suspect]
     Dosage: 1DF:125MG/ML
     Route: 058
  2. LORAZEPAM [Concomitant]
  3. ANTIVERT [Concomitant]
  4. METHOTREXATE [Concomitant]
  5. FOLIC ACID [Concomitant]
  6. SYNTHROID [Concomitant]
  7. ADVIL [Concomitant]

REACTIONS (3)
  - Influenza [Unknown]
  - Swelling [Unknown]
  - Erythema [Unknown]
